FAERS Safety Report 7012244 (Version 3)
Quarter: 2015Q2

REPORT INFORMATION
  Report Type: Spontaneous
  Country: US (occurrence: US)
  Receive Date: 20090605
  Receipt Date: 20150526
  Transmission Date: 20150821
  Serious: Yes (Other)
  Sender: FDA-Public Use
  Company Number: US-JNJFOC-20090600543

PATIENT
  Age: 21 Year
  Sex: Female
  Weight: 61.24 kg

DRUGS (11)
  1. HYDROXYZINE [Suspect]
     Active Substance: HYDROXYZINE\HYDROXYZINE HYDROCHLORIDE
     Indication: PRODUCT USED FOR UNKNOWN INDICATION
     Route: 065
  2. TOPAMAX [Suspect]
     Active Substance: TOPIRAMATE
     Indication: MIGRAINE
     Route: 048
     Dates: start: 2006, end: 20090402
  3. RISPERIDONE. [Suspect]
     Active Substance: RISPERIDONE
     Indication: MIGRAINE
     Dosage: AT BED TIME
     Route: 048
     Dates: start: 200903, end: 20090402
  4. TRAZODONE [Concomitant]
     Active Substance: TRAZODONE HYDROCHLORIDE
     Indication: DEPRESSION
     Route: 048
     Dates: start: 199809, end: 1999
  5. ZOFRAN [Concomitant]
     Active Substance: ONDANSETRON HYDROCHLORIDE
     Indication: MIGRAINE
     Route: 030
     Dates: end: 20090402
  6. RISPERDAL [Suspect]
     Active Substance: RISPERIDONE
     Indication: MIGRAINE
     Dosage: AT BED TIME
     Route: 048
     Dates: start: 199809, end: 199903
  7. DEPAKOTE [Concomitant]
     Active Substance: DIVALPROEX SODIUM
     Route: 048
     Dates: start: 199809, end: 1999
  8. ZOFRAN [Concomitant]
     Active Substance: ONDANSETRON HYDROCHLORIDE
     Indication: NAUSEA
     Route: 030
     Dates: end: 20090402
  9. HYDROXYZINE [Suspect]
     Active Substance: HYDROXYZINE\HYDROXYZINE HYDROCHLORIDE
     Indication: PRODUCT USED FOR UNKNOWN INDICATION
     Route: 065
     Dates: start: 199809, end: 1999
  10. COGENTIN [Suspect]
     Active Substance: BENZTROPINE MESYLATE
     Indication: MIGRAINE
     Route: 048
     Dates: end: 20090402
  11. EFFEXOR [Concomitant]
     Active Substance: VENLAFAXINE HYDROCHLORIDE
     Indication: DEPRESSION
     Route: 048
     Dates: start: 199809, end: 1999

REACTIONS (10)
  - Off label use [Recovered/Resolved]
  - Hypertension [Recovered/Resolved]
  - Psychomotor hyperactivity [Recovered/Resolved]
  - Drooling [Recovered/Resolved]
  - Self-medication [Recovered/Resolved]
  - Restlessness [Recovered/Resolved]
  - Heart rate increased [Recovered/Resolved]
  - Urinary incontinence [Recovered/Resolved]
  - Anxiety [Recovered/Resolved]
  - Chest pain [Recovered/Resolved]

NARRATIVE: CASE EVENT DATE: 199809
